FAERS Safety Report 21647672 (Version 3)
Quarter: 2022Q4

REPORT INFORMATION
  Report Type: Other
  Country: PL (occurrence: PL)
  Receive Date: 20221128
  Receipt Date: 20221214
  Transmission Date: 20230112
  Serious: Yes (Hospitalization)
  Sender: FDA-Public Use
  Company Number: PL-PFIZER INC-PV202200100190

PATIENT
  Age: 63 Year
  Sex: Female
  Weight: 66 kg

DRUGS (11)
  1. BEVACIZUMAB [Suspect]
     Active Substance: BEVACIZUMAB
     Indication: Ovarian cancer stage IV
     Dosage: MAINTENANCE THERAPY
     Route: 065
  2. BEVACIZUMAB [Suspect]
     Active Substance: BEVACIZUMAB
     Indication: Ovarian cancer
     Dosage: 7.5 MG/KG, EVERY 3 WEEKS
     Route: 065
     Dates: start: 202003
  3. IRON [Suspect]
     Active Substance: IRON
     Indication: Blood iron decreased
     Dosage: UNK
     Route: 065
  4. OLAPARIB [Suspect]
     Active Substance: OLAPARIB
     Indication: Ovarian cancer
     Dosage: 300 MG, 2X/DAY
     Route: 065
  5. OLAPARIB [Suspect]
     Active Substance: OLAPARIB
     Dosage: 250 MG, 2X/DAY
     Route: 065
  6. OLAPARIB [Suspect]
     Active Substance: OLAPARIB
     Dosage: 200 MG, 2X/DAY
     Route: 065
  7. OLAPARIB [Suspect]
     Active Substance: OLAPARIB
     Route: 065
     Dates: start: 202008
  8. PACLITAXEL [Suspect]
     Active Substance: PACLITAXEL
     Indication: Ovarian cancer stage IV
     Dosage: 175 MG/M2
     Route: 065
  9. CARBOPLATIN [Suspect]
     Active Substance: CARBOPLATIN
     Indication: Ovarian cancer
     Route: 065
  10. PACLITAXEL [Concomitant]
     Active Substance: PACLITAXEL
     Indication: Ovarian cancer
     Dates: start: 202003, end: 202008
  11. CARBOPLATIN [Concomitant]
     Active Substance: CARBOPLATIN

REACTIONS (2)
  - Blood pressure increased [Unknown]
  - Anaemia [Not Recovered/Not Resolved]
